FAERS Safety Report 16542165 (Version 1)
Quarter: 2019Q3

REPORT INFORMATION
  Report Type: Report from Study
  Country: US (occurrence: US)
  Receive Date: 20190708
  Receipt Date: 20190708
  Transmission Date: 20191004
  Serious: Yes (Other)
  Sender: FDA-Public Use
  Company Number: US-JNJFOC-20190637188

PATIENT
  Age: 86 Year
  Sex: Female

DRUGS (25)
  1. ALLEGRA [Concomitant]
     Active Substance: FEXOFENADINE HYDROCHLORIDE
  2. DORZOLAMIDE [Concomitant]
     Active Substance: DORZOLAMIDE
  3. SENNA                              /00142201/ [Concomitant]
     Active Substance: SENNA LEAF
  4. MULTIVITAMIN                       /00097801/ [Concomitant]
     Active Substance: VITAMINS
  5. MELOXICAM. [Concomitant]
     Active Substance: MELOXICAM
  6. OXYCODONE W/APAP [Concomitant]
     Active Substance: ACETAMINOPHEN\OXYCODONE HYDROCHLORIDE
  7. VITAMIN E                          /00110501/ [Suspect]
     Active Substance: TOCOPHEROL
     Indication: PRODUCT USED FOR UNKNOWN INDICATION
     Route: 065
  8. MELATONIN [Concomitant]
     Active Substance: MELATONIN
  9. ALBUTEROL                          /00139501/ [Concomitant]
     Active Substance: ALBUTEROL
  10. CARVEDILOL. [Concomitant]
     Active Substance: CARVEDILOL
  11. FLUTICASONE. [Concomitant]
     Active Substance: FLUTICASONE
  12. DOCUSATE SODIUM. [Concomitant]
     Active Substance: DOCUSATE SODIUM
  13. CALCIUM [Concomitant]
     Active Substance: CALCIUM
  14. IMBRUVICA [Suspect]
     Active Substance: IBRUTINIB
     Indication: MANTLE CELL LYMPHOMA
     Dosage: 280 MG, QD
     Route: 048
     Dates: start: 20180602
  15. ALLOPURINOL. [Concomitant]
     Active Substance: ALLOPURINOL
  16. AZITHROMYCIN ANHYDROUS. [Concomitant]
     Active Substance: AZITHROMYCIN ANHYDROUS
  17. VITAMIN D2 [Concomitant]
     Active Substance: ERGOCALCIFEROL
  18. VITAMIN B [Concomitant]
     Active Substance: VITAMIN B
  19. LECITHIN [Concomitant]
     Active Substance: LECITHIN
  20. METHADONE [Concomitant]
     Active Substance: METHADONE HYDROCHLORIDE
  21. ROSUVASTATIN. [Concomitant]
     Active Substance: ROSUVASTATIN
  22. FISH OIL [Suspect]
     Active Substance: FISH OIL
     Indication: PRODUCT USED FOR UNKNOWN INDICATION
     Route: 065
  23. VITAMIN C [Concomitant]
     Active Substance: ASCORBIC ACID
  24. PRESERVISION [Concomitant]
     Active Substance: MINERALS\VITAMINS
  25. DOXEPIN [Concomitant]
     Active Substance: DOXEPIN

REACTIONS (1)
  - Wound haemorrhage [Recovering/Resolving]

NARRATIVE: CASE EVENT DATE: 20190622
